FAERS Safety Report 7380344-4 (Version None)
Quarter: 2011Q1

REPORT INFORMATION
  Report Type: 
  Country: None (occurrence: None)
  Receive Date: 20110329
  Receipt Date: 20110323
  Transmission Date: 20110831
  Serious: Yes (Hospitalization)
  Sender: FDA-Public Use
  Company Number: FR-ROCHE-701922

PATIENT
  Sex: Female
  Weight: 58 kg

DRUGS (6)
  1. EPIRUBICINE [Suspect]
     Indication: BREAST CANCER
     Dosage: FORM, FREQUENCY: NOT PROVIDED.  LAST DOSE WAS 167 MG.
     Route: 042
     Dates: start: 20100224, end: 20100409
  2. TRANXENE [Concomitant]
     Dates: start: 20100201
  3. BEVACIZUMAB [Suspect]
     Indication: BREAST CANCER
     Dosage: FORM AND FREQUENCY: UNKNOWN, LAST DOSE PRIOR TO SAE: 09 APRIL 2010. THERAPY PERMANENTLY DISCONTINUED
     Route: 042
     Dates: start: 20100224
  4. CYCLOPHOSPHAMIDE [Suspect]
     Indication: BREAST CANCER
     Dosage: FORM, FREQUENY: NOT PROVIDED; LAST DOSE PRIOR TO SAE: 09 APRIL 2010.
     Route: 042
     Dates: start: 20100224
  5. MOPRAL [Concomitant]
     Dates: start: 20100201
  6. 5-FLUOROURACIL [Suspect]
     Indication: BREAST CANCER
     Dosage: FORM, FREQUENCY: NOT PROVIDED; LAST DOSE PRIOR TO SAE: 24 FEBRUARY 2010; PERMANANTLY DISCONTINUED.
     Route: 042
     Dates: start: 20100224

REACTIONS (1)
  - ANAL ULCER [None]
